FAERS Safety Report 14726593 (Version 2)
Quarter: 2018Q2

REPORT INFORMATION
  Report Type: Spontaneous
  Country: US (occurrence: US)
  Receive Date: 20180406
  Receipt Date: 20180423
  Transmission Date: 20180711
  Serious: Yes (Other)
  Sender: FDA-Public Use
  Company Number: US-009507513-1803USA012434

PATIENT
  Sex: Female

DRUGS (1)
  1. NEXPLANON [Suspect]
     Active Substance: ETONOGESTREL
     Indication: CONTRACEPTION
     Dosage: 1 ROD, UNSPECIFIED ARM, UNK
     Route: 059
     Dates: start: 20180207, end: 20180314

REACTIONS (2)
  - Implant site cellulitis [Recovered/Resolved]
  - Cellulitis staphylococcal [Recovered/Resolved]

NARRATIVE: CASE EVENT DATE: 20180219
